FAERS Safety Report 11272212 (Version 1)
Quarter: 2015Q3

REPORT INFORMATION
  Report Type: Spontaneous
  Country: US (occurrence: US)
  Receive Date: 20150715
  Receipt Date: 20150715
  Transmission Date: 20151125
  Serious: Yes (Other)
  Sender: FDA-Public Use
  Company Number: US-MALLINCKRODT-T201503369

PATIENT
  Age: 63 Year
  Sex: Male
  Weight: 97 kg

DRUGS (11)
  1. GENTAMYCIN [Concomitant]
     Active Substance: GENTAMICIN
  2. INVANZ [Concomitant]
     Active Substance: ERTAPENEM SODIUM
  3. TRAMADOL. [Concomitant]
     Active Substance: TRAMADOL
  4. HEPARIN [Concomitant]
     Active Substance: HEPARIN SODIUM
     Dosage: 5,000 UNITS SQ Q8 HOURS
     Route: 058
  5. ENTEREG [Concomitant]
     Active Substance: ALVIMOPAN
     Dosage: 12 MG, BID
     Route: 048
  6. OFIRMEV [Suspect]
     Active Substance: ACETAMINOPHEN
     Indication: PAIN
     Dosage: 1000 MG EVERY 8 HOURS
     Route: 042
     Dates: start: 20150630, end: 20150705
  7. FLOMAX [Concomitant]
     Active Substance: TAMSULOSIN HYDROCHLORIDE
  8. DEMEROL [Concomitant]
     Active Substance: MEPERIDINE HYDROCHLORIDE
  9. PHENERGAN [Concomitant]
     Active Substance: PROMETHAZINE HYDROCHLORIDE
  10. ROCEPHIN [Concomitant]
     Active Substance: CEFTRIAXONE SODIUM
     Dosage: 1 G
  11. MORPHINE [Concomitant]
     Active Substance: MORPHINE

REACTIONS (9)
  - Staphylococcal infection [Not Recovered/Not Resolved]
  - Injection site irritation [Not Recovered/Not Resolved]
  - Infusion site extravasation [Unknown]
  - Injection site pain [Not Recovered/Not Resolved]
  - Injection site warmth [Not Recovered/Not Resolved]
  - Injection site erythema [Not Recovered/Not Resolved]
  - Injection site swelling [Not Recovered/Not Resolved]
  - White blood cell count increased [Not Recovered/Not Resolved]
  - Platelet count increased [Not Recovered/Not Resolved]

NARRATIVE: CASE EVENT DATE: 20150702
